FAERS Safety Report 8992766 (Version 2)
Quarter: 2013Q1

REPORT INFORMATION
  Report Type: Report from Study
  Country: US (occurrence: US)
  Receive Date: 20130102
  Receipt Date: 20130114
  Transmission Date: 20140127
  Serious: Yes (Other)
  Sender: FDA-Public Use
  Company Number: US-ROCHE-1175823

PATIENT
  Age: 56 Year
  Sex: Male

DRUGS (1)
  1. ALTEPLASE [Suspect]
     Indication: RETINAL VEIN OCCLUSION
     Dosage: SEVERAL MINUTES
     Route: 050

REACTIONS (2)
  - Retinal haemorrhage [Unknown]
  - Macular oedema [Unknown]
